FAERS Safety Report 10278861 (Version 3)
Quarter: 2014Q4

REPORT INFORMATION
  Report Type: Report from Study
  Country: CO (occurrence: CO)
  Receive Date: 20140706
  Receipt Date: 20141001
  Transmission Date: 20150528
  Serious: Yes (Death, Hospitalization, Other)
  Sender: FDA-Public Use
  Company Number: CO-SA-2014SA087615

PATIENT
  Age: 67 Year
  Sex: Male

DRUGS (1)
  1. LANTUS [Suspect]
     Active Substance: INSULIN GLARGINE
     Indication: DIABETES MELLITUS
     Dosage: DOSE:44 UNIT(S)
     Route: 058
     Dates: start: 201405

REACTIONS (7)
  - Sepsis [Recovering/Resolving]
  - Acute kidney injury [Unknown]
  - Pneumonia [Unknown]
  - Bacteraemia [Recovering/Resolving]
  - Soft tissue infection [Fatal]
  - Respiratory distress [Fatal]
  - Gangrene [Recovering/Resolving]

NARRATIVE: CASE EVENT DATE: 201406
